FAERS Safety Report 5811884-4 (Version None)
Quarter: 2008Q3

REPORT INFORMATION
  Report Type: 
  Country: None (occurrence: None)
  Receive Date: 20080716
  Receipt Date: 20080703
  Transmission Date: 20090109
  Serious: Yes (Hospitalization)
  Sender: FDA-Public Use
  Company Number: CH-ELI_LILLY_AND_COMPANY-CH200807000926

PATIENT
  Age: 73 Year
  Sex: Male

DRUGS (3)
  1. CYMBALTA [Suspect]
     Indication: DEPRESSION
     Dosage: 30 MG, DAILY (1/D)
     Route: 048
     Dates: start: 20080515, end: 20080518
  2. XANAX [Concomitant]
     Indication: ANXIETY
     Dosage: UNK, UNKNOWN
     Route: 048
     Dates: start: 20080515, end: 20080518
  3. XANAX [Concomitant]
     Dosage: REDUCED DOSE UNKNOWN
     Route: 048
     Dates: start: 20080519

REACTIONS (3)
  - HYPOTENSION [None]
  - MALAISE [None]
  - PRESYNCOPE [None]
